FAERS Safety Report 12908694 (Version 3)
Quarter: 2016Q4

REPORT INFORMATION
  Report Type: Spontaneous
  Country: US (occurrence: US)
  Receive Date: 20161103
  Receipt Date: 20161227
  Transmission Date: 20170207
  Serious: Yes (Death)
  Sender: FDA-Public Use
  Company Number: US-CELGENEUS-USA-2016106796

PATIENT
  Age: 66 Year
  Sex: Male
  Weight: 62.65 kg

DRUGS (3)
  1. REVLIMID [Suspect]
     Active Substance: LENALIDOMIDE
     Indication: PLASMA CELL MYELOMA
     Dosage: 10 MG
     Route: 048
     Dates: start: 201508
  2. REVLIMID [Suspect]
     Active Substance: LENALIDOMIDE
     Indication: PLASMACYTOMA
     Dosage: 10 MG
     Route: 048
     Dates: start: 20160112, end: 20160122
  3. REVLIMID [Suspect]
     Active Substance: LENALIDOMIDE
     Dosage: 10 MG
     Route: 048
     Dates: start: 201604, end: 2016

REACTIONS (2)
  - Plasma cell myeloma [Fatal]
  - Cardio-respiratory arrest [Fatal]

NARRATIVE: CASE EVENT DATE: 20160805
